FAERS Safety Report 4296540-9 (Version None)
Quarter: 2004Q1

REPORT INFORMATION
  Report Type: 
  Country: None (occurrence: None)
  Receive Date: 20040122
  Receipt Date: 20031107
  Transmission Date: 20041129
  Serious: Yes (Other)
  Sender: FDA-Public Use
  Company Number: 2003117182

PATIENT
  Sex: Female

DRUGS (3)
  1. RELPAX [Suspect]
     Indication: MIGRAINE
     Dosage: 40 MG
  2. PROMETHAZINE [Suspect]
     Indication: MIGRAINE
     Dosage: 25 MG , INTRAMUSCULAR
     Route: 030
  3. .. [Concomitant]

REACTIONS (2)
  - DYSKINESIA [None]
  - HYPERHIDROSIS [None]
